FAERS Safety Report 6673996-5 (Version None)
Quarter: 2010Q2

REPORT INFORMATION
  Report Type: 
  Country: None (occurrence: None)
  Receive Date: 20100409
  Receipt Date: 20100129
  Transmission Date: 20101027
  Serious: No
  Sender: FDA-Public Use
  Company Number: A0842131A

PATIENT
  Sex: Male

DRUGS (2)
  1. EXTINA [Suspect]
     Indication: DERMATITIS
     Route: 061
     Dates: start: 20100101
  2. UNKNOWN [Concomitant]

REACTIONS (1)
  - DRUG INEFFECTIVE [None]
